FAERS Safety Report 10975830 (Version 2)
Quarter: 2015Q2

REPORT INFORMATION
  Report Type: Report from Study
  Country: HR (occurrence: HR)
  Receive Date: 20150401
  Receipt Date: 20150501
  Transmission Date: 20150821
  Serious: Yes (Life-Threatening, Hospitalization, Other)
  Sender: FDA-Public Use
  Company Number: PHHY2015HR036615

PATIENT
  Sex: Female

DRUGS (12)
  1. PROGRAF [Suspect]
     Active Substance: TACROLIMUS\TACROLIMUS ANHYDROUS
     Indication: LIVER TRANSPLANT
     Dosage: 2X2 MG, (9,9 MCG/L)
     Route: 065
  2. ALDIZEM [Concomitant]
     Indication: HYPERTENSION
     Dosage: 180 MG, QD
     Route: 048
     Dates: start: 2013
  3. AMOXICILLIN/CLAVULANIC ACID [Suspect]
     Active Substance: AMOXICILLIN\CLAVULANIC ACID
     Indication: PRODUCT USED FOR UNKNOWN INDICATION
     Route: 065
  4. TRICOR [Concomitant]
     Active Substance: FENOFIBRATE
     Indication: HYPERTRIGLYCERIDAEMIA
     Dosage: 160 MG, QD
     Route: 048
  5. NEORAL [Suspect]
     Active Substance: CYCLOSPORINE
     Dosage: MODIFIED DOSE
     Route: 048
     Dates: start: 20130730
  6. CELLCEPT [Suspect]
     Active Substance: MYCOPHENOLATE MOFETIL\MYCOPHENOLATE MOFETIL HYDROCHLORIDE
     Indication: LIVER TRANSPLANT
     Dosage: 1000 MG, QD (2X 500 MG)
     Route: 048
     Dates: start: 20121223
  7. CELLCEPT [Suspect]
     Active Substance: MYCOPHENOLATE MOFETIL\MYCOPHENOLATE MOFETIL HYDROCHLORIDE
     Dosage: MODIFIED DOSE
     Route: 048
     Dates: start: 20130730
  8. CONTROLOC [Concomitant]
     Active Substance: PANTOPRAZOLE SODIUM
     Indication: GASTRIC DISORDER
     Dosage: 40 MG, QD
     Route: 048
  9. BYOL [Concomitant]
     Active Substance: BISOPROLOL
     Indication: HYPERTENSION
     Dosage: 5 MG, QD
     Route: 048
  10. MARTEFARIN [Concomitant]
     Active Substance: WARFARIN
     Indication: CARDIAC VALVE DISEASE
     Dosage: 1.5 MG, QD
     Route: 048
  11. FURSEMID [Concomitant]
     Active Substance: FUROSEMIDE
     Indication: CARDIAC FAILURE CONGESTIVE
     Dosage: 20 MG, QD
     Route: 048
  12. NEORAL [Suspect]
     Active Substance: CYCLOSPORINE
     Indication: LIVER TRANSPLANT
     Dosage: (2X75 MG), QD (194 MCG/L)
     Route: 048
     Dates: start: 20121223

REACTIONS (15)
  - Endocarditis [Recovered/Resolved]
  - Hepatotoxicity [Recovered/Resolved]
  - Blood urea increased [Unknown]
  - Hepatic haematoma [Recovered/Resolved]
  - Hepatic enzyme increased [Recovered/Resolved]
  - Hepatotoxicity [Recovered/Resolved]
  - Blood calcium decreased [Unknown]
  - Hepatotoxicity [Recovered/Resolved]
  - Urinary tract infection [Recovered/Resolved]
  - Gangrene [Recovered/Resolved]
  - Renal impairment [Recovered/Resolved]
  - Blood alkaline phosphatase increased [Unknown]
  - Chronic kidney disease [Recovering/Resolving]
  - Haemoglobin decreased [Unknown]
  - Blood glucose increased [Unknown]

NARRATIVE: CASE EVENT DATE: 20130430
